FAERS Safety Report 8136113-0 (Version None)
Quarter: 2012Q1

REPORT INFORMATION
  Report Type: 
  Country: None (occurrence: None)
  Receive Date: 20120214
  Receipt Date: 20120113
  Transmission Date: 20120608
  Serious: No
  Sender: FDA-Public Use
  Company Number: US-COVIDIEN/TYCO HEALTHCARE/MALLINCKRODT-T201200435

PATIENT
  Sex: Female

DRUGS (7)
  1. FENTANYL-100 [Suspect]
     Indication: CANCER PAIN
     Dosage: 50 UG/HR, 1 FTS Q 3 DAYS
     Route: 062
     Dates: start: 20120106
  2. FENTANYL [Concomitant]
     Indication: CANCER PAIN
     Dosage: 25 UG/HR, 1 FTS Q 3 DAYS
     Route: 062
     Dates: start: 20111031, end: 20120106
  3. SYNTHROID [Concomitant]
     Indication: HYPOTHYROIDISM
     Dosage: UNK
  4. REMERON [Concomitant]
     Indication: DEPRESSION
     Dosage: UNK
  5. DILAUDID [Concomitant]
     Indication: BREAKTHROUGH PAIN
     Dosage: UNK
  6. CRESTOR [Concomitant]
     Indication: BLOOD CHOLESTEROL INCREASED
     Dosage: UNK
  7. KLONOPIN [Concomitant]
     Indication: ANXIETY
     Dosage: UNK

REACTIONS (5)
  - NAUSEA [None]
  - INFLUENZA LIKE ILLNESS [None]
  - HOT FLUSH [None]
  - HYPERHIDROSIS [None]
  - PRURITUS [None]
